FAERS Safety Report 5639321-3 (Version None)
Quarter: 2008Q1

REPORT INFORMATION
  Report Type: 
  Country: None (occurrence: None)
  Receive Date: 20080226
  Receipt Date: 20080220
  Transmission Date: 20080703
  Serious: Yes (Other)
  Sender: FDA-Public Use
  Company Number: US-ALLERGAN-0802056US

PATIENT
  Sex: Female

DRUGS (1)
  1. BOTOX COSMETIC [Suspect]
     Indication: SKIN WRINKLING
     Dosage: 44 UNITS, SINGLE
     Route: 030
     Dates: start: 20080212, end: 20080212

REACTIONS (4)
  - BLEPHARITIS [None]
  - CONJUNCTIVITIS [None]
  - EYE IRRITATION [None]
  - WRONG TECHNIQUE IN DRUG USAGE PROCESS [None]
